FAERS Safety Report 5868190-1 (Version None)
Quarter: 2008Q3

REPORT INFORMATION
  Report Type: 
  Country: None (occurrence: None)
  Receive Date: 20080902
  Receipt Date: 20080828
  Transmission Date: 20090109
  Serious: Yes (Disabling)
  Sender: FDA-Public Use
  Company Number: US-GENENTECH-265652

PATIENT
  Sex: Male
  Weight: 101.59 kg

DRUGS (26)
  1. ERLOTINIB [Suspect]
     Indication: NON-SMALL CELL LUNG CANCER
     Dosage: 150 MG, QD
     Route: 048
     Dates: start: 20080105, end: 20080731
  2. AVASTIN [Suspect]
     Indication: NON-SMALL CELL LUNG CANCER
     Dosage: 1636 MG, Q3W
     Route: 042
     Dates: start: 20070928, end: 20080711
  3. CHEMOTHERAPY (UNK INGREDIENTS) [Suspect]
     Indication: NON-SMALL CELL LUNG CANCER
     Dosage: UNK
     Route: 042
     Dates: start: 20070928, end: 20071130
  4. LIPITOR [Concomitant]
     Indication: HYPERCHOLESTEROLAEMIA
  5. LOTREL [Concomitant]
     Indication: HYPERTENSION
     Dosage: 1 TABLET, QD
     Route: 048
     Dates: start: 20040101
  6. MOTRIN [Concomitant]
     Indication: PAIN
     Dosage: 800 MG, PRN
     Dates: start: 20070601
  7. VICODIN ES [Concomitant]
     Indication: PAIN
     Dosage: 10 MG, PRN
     Route: 048
     Dates: start: 20070801
  8. VICODIN ES [Concomitant]
     Dosage: 500 MG, PRN
     Route: 048
     Dates: start: 20070801
  9. GLUCOSAMINE [Concomitant]
     Indication: ARTHRITIS
     Dosage: 1500 MG, QD
     Route: 048
     Dates: start: 19940101
  10. CHONDROITIN [Concomitant]
     Indication: ARTHRITIS
     Dosage: 1200 MG, QD
     Route: 048
     Dates: start: 19940101
  11. DYAZIDE [Concomitant]
     Indication: HYPERTENSION
     Dosage: 37.5 MG, QD
     Route: 048
     Dates: start: 20020101
  12. PROTONIX [Concomitant]
     Indication: GASTROINTESTINAL DISORDER
     Dosage: 40 MG, QD
     Route: 048
     Dates: start: 20080201
  13. SENNA [Concomitant]
     Indication: DRUG USE FOR UNKNOWN INDICATION
     Dosage: 1 TABLET, BID
     Route: 048
     Dates: start: 20080201
  14. FLOMAX [Concomitant]
     Indication: PROSTATIC DISORDER
     Dosage: 0.4 MG, QD
     Route: 048
     Dates: start: 20080201
  15. OXYCONTIN [Concomitant]
     Indication: PAIN
     Dosage: 10 MG, Q8H
     Route: 048
  16. DEXAMETHASONE TAB [Concomitant]
     Indication: NAUSEA
     Dosage: 1 MG, Q6H
  17. DEXAMETHASONE TAB [Concomitant]
     Dosage: 1 MG, Q6H
     Route: 048
     Dates: start: 20081101
  18. XALATAN [Concomitant]
     Indication: GLAUCOMA
     Dosage: 125 MG, QHS
     Route: 047
     Dates: start: 20080201
  19. LOVENOX [Concomitant]
     Indication: DEEP VEIN THROMBOSIS
     Dosage: 100 MG, QD
     Route: 058
  20. GLAUCOMA EYE DROPS (UNK INGREDIENTS) [Concomitant]
     Indication: GLAUCOMA
  21. LUMIGAN [Concomitant]
     Indication: DRUG USE FOR UNKNOWN INDICATION
     Dosage: 0.03 %, QHS
     Route: 047
     Dates: start: 20080601
  22. CELEXA [Concomitant]
     Indication: DEPRESSION
     Dosage: 20 MG, QD
     Route: 048
     Dates: start: 20080601
  23. ATIVAN [Concomitant]
     Indication: NAUSEA
     Dosage: 0.5 MG, Q6H
     Route: 048
  24. COUMADIN [Concomitant]
     Indication: DRUG USE FOR UNKNOWN INDICATION
  25. VICODIN [Concomitant]
     Indication: DRUG USE FOR UNKNOWN INDICATION
     Dosage: 10 MG, Q8H
     Route: 048
  26. PROSTATE SUPPORT [Concomitant]
     Indication: DRUG USE FOR UNKNOWN INDICATION
     Dosage: 1 TABLET, QD
     Route: 048
     Dates: start: 20080501

REACTIONS (3)
  - CATARACT [None]
  - OPTIC NEUROPATHY [None]
  - VISION BLURRED [None]
